FAERS Safety Report 8805529 (Version 1)
Quarter: 2012Q4

REPORT INFORMATION
  Report Type: Spontaneous
  Country: GB (occurrence: None)
  Receive Date: 20120917
  Receipt Date: 20120917
  Transmission Date: 20130627
  Serious: Yes (Other)
  Sender: FDA-Public Use
  Company Number: 2012AP002869

PATIENT
  Sex: Female

DRUGS (3)
  1. ALENDRONATE SODIUM [Suspect]
     Dates: start: 201108
  2. LETROZOLE [Suspect]
  3. DALTEPARIN (DALTEPARIN) [Concomitant]

REACTIONS (11)
  - Monoplegia [None]
  - Bone pain [None]
  - Condition aggravated [None]
  - Drug interaction [None]
  - Spinal fracture [None]
  - Arthralgia [None]
  - Migraine [None]
  - Myalgia [None]
  - Osteoporosis [None]
  - Aphasia [None]
  - Back pain [None]
